FAERS Safety Report 8237582-8 (Version None)
Quarter: 2012Q1

REPORT INFORMATION
  Report Type: 
  Country: None (occurrence: None)
  Receive Date: 20120327
  Receipt Date: 20120322
  Transmission Date: 20120608
  Serious: Yes (Other)
  Sender: FDA-Public Use
  Company Number: US-PFIZER INC-HQWYE383111NOV04

PATIENT
  Sex: Female
  Weight: 86 kg

DRUGS (3)
  1. PREMPHASE (PREMARIN;CYCRIN 14/14) [Suspect]
     Indication: HORMONE REPLACEMENT THERAPY
     Dosage: UNK
     Route: 048
     Dates: start: 19970701, end: 20001031
  2. IBUPROFEN [Concomitant]
     Indication: ARTHRITIS
     Dosage: UNK
     Dates: start: 19950101, end: 20070101
  3. PAXIL [Concomitant]
     Indication: DEPRESSION
     Dosage: UNK
     Dates: start: 19970101, end: 20070101

REACTIONS (3)
  - DEPRESSION [None]
  - INSOMNIA [None]
  - BREAST CANCER FEMALE [None]
